FAERS Safety Report 11237770 (Version 1)
Quarter: 2015Q3

REPORT INFORMATION
  Report Type: Report from Study
  Country: US (occurrence: US)
  Receive Date: 20150703
  Receipt Date: 20150703
  Transmission Date: 20151125
  Serious: Yes (Other)
  Sender: FDA-Public Use
  Company Number: US-GILEAD-2015-0161647

PATIENT
  Age: 72 Year
  Sex: Female

DRUGS (2)
  1. AMBRISENTAN [Suspect]
     Active Substance: AMBRISENTAN
     Indication: PRODUCT USED FOR UNKNOWN INDICATION
     Dosage: 10 MG, QD
     Route: 065
     Dates: start: 20140605
  2. ADCIRCA [Concomitant]
     Active Substance: TADALAFIL

REACTIONS (4)
  - Presyncope [Unknown]
  - Dyspnoea [Unknown]
  - Cellulitis [Recovering/Resolving]
  - Nausea [Unknown]
